FAERS Safety Report 6165330-4 (Version None)
Quarter: 2009Q2

REPORT INFORMATION
  Report Type: 
  Country: None (occurrence: None)
  Receive Date: 20090421
  Receipt Date: 20090421
  Transmission Date: 20091009
  Serious: Yes (Hospitalization)
  Sender: FDA-Public Use
  Company Number: None

PATIENT
  Age: 63 Year
  Sex: Male
  Weight: 84.8 kg

DRUGS (2)
  1. METYROSINE [Suspect]
     Indication: PHAEOCHROMOCYTOMA
     Dosage: 250 MG QID PO
     Route: 048
     Dates: start: 20090219
  2. PHENOXYBENZAMINE [Suspect]
     Indication: PHAEOCHROMOCYTOMA
     Dosage: 20 MG TID PO
     Route: 048
     Dates: start: 20090212

REACTIONS (2)
  - BLOOD PRESSURE ORTHOSTATIC [None]
  - DIZZINESS [None]
